FAERS Safety Report 6811074-2 (Version None)
Quarter: 2010Q2

REPORT INFORMATION
  Report Type: 
  Country: None (occurrence: None)
  Receive Date: 20100630
  Receipt Date: 20100622
  Transmission Date: 20101027
  Serious: Yes (Other)
  Sender: FDA-Public Use
  Company Number: US-AMGEN-QUU419880

PATIENT
  Sex: Female
  Weight: 56.3 kg

DRUGS (3)
  1. NPLATE [Suspect]
     Indication: IDIOPATHIC THROMBOCYTOPENIC PURPURA
     Dates: start: 20090601
  2. COZAAR [Concomitant]
  3. THYROID HORMONES [Concomitant]

REACTIONS (4)
  - ANAEMIA [None]
  - BONE MARROW DISORDER [None]
  - THERAPEUTIC RESPONSE DECREASED [None]
  - WEIGHT DECREASED [None]
